FAERS Safety Report 10158306 (Version 1)
Quarter: 2014Q2

REPORT INFORMATION
  Report Type: Spontaneous
  Country: US (occurrence: US)
  Receive Date: 20140507
  Receipt Date: 20140507
  Transmission Date: 20141212
  Serious: Yes (Other)
  Sender: FDA-Public Use
  Company Number: US-B.I. PHARMACEUTICALS,INC./RIDGEFIELD-2014-BI-19916BP

PATIENT
  Age: 64 Year
  Sex: Male

DRUGS (1)
  1. MELOXICAM [Suspect]
     Indication: GOUT
     Route: 065

REACTIONS (1)
  - Renal cell carcinoma [Unknown]
